FAERS Safety Report 4776560-8 (Version None)
Quarter: 2005Q3

REPORT INFORMATION
  Report Type: 
  Country: None (occurrence: None)
  Receive Date: 20050915
  Receipt Date: 20050905
  Transmission Date: 20060218
  Serious: Yes (Death, Hospitalization)
  Sender: FDA-Public Use
  Company Number: 2004114921

PATIENT
  Age: 76 Year
  Sex: Male
  Weight: 98 kg

DRUGS (13)
  1. SPIRONOLACTONE [Suspect]
     Indication: ILL-DEFINED DISORDER
     Dosage: 100 MG (50 MG, DAILY), ORAL
     Route: 048
  2. CLOXACILLIN SODIUM [Suspect]
     Indication: ARTHRITIS BACTERIAL
     Dosage: INTRAVENOUS
     Route: 042
     Dates: start: 20040901, end: 20040914
  3. VITAMIN B1 AND B6            (PYRIDOXINE, THIAMINE) [Concomitant]
  4. POTASSIUM CHLORIDE [Concomitant]
  5. MOTILIUM [Concomitant]
  6. OXAZEPAM [Concomitant]
  7. DUPHALAC [Concomitant]
  8. RIFADIN [Suspect]
     Indication: ARTHRITIS BACTERIAL
     Dosage: OPHTHALMIC
     Route: 047
     Dates: start: 20040914, end: 20040920
  9. LEVOFLOXACIN [Suspect]
     Indication: ARTHRITIS BACTERIAL
     Dosage: INTRAVENOUS
     Route: 042
     Dates: start: 20040901
  10. FUROSEMIDE [Suspect]
     Indication: ILL-DEFINED DISORDER
     Dosage: 40 MG (40 MG, DAILY), ORAL
     Route: 048
  11. ACETAMINOPHEN [Suspect]
     Indication: ILL-DEFINED DISORDER
     Dosage: 6 DOSES FORMS (TID), ORAL
     Route: 048
     Dates: start: 20040914, end: 20040921
  12. CLOXACILLIN SODIUM [Suspect]
     Dosage: 3000 MG (1000 MG, TID), ORAL
     Route: 048
     Dates: start: 20040920, end: 20041007
  13. TAVANIC (LEVOFLOXACIIN) [Suspect]
     Dosage: 500 MG (DAILY), ORAL
     Route: 048
     Dates: start: 20040914, end: 20041006

REACTIONS (8)
  - ABDOMINAL PAIN UPPER [None]
  - CHOLESTASIS [None]
  - CYTOLYTIC HEPATITIS [None]
  - ENCEPHALOPATHY [None]
  - HEPATIC CIRRHOSIS [None]
  - OEDEMA PERIPHERAL [None]
  - OESOPHAGEAL CANDIDIASIS [None]
  - PORTAL HYPERTENSION [None]
